FAERS Safety Report 7570917-8 (Version None)
Quarter: 2011Q2

REPORT INFORMATION
  Report Type: 
  Country: None (occurrence: None)
  Receive Date: 20110624
  Receipt Date: 20110616
  Transmission Date: 20111010
  Serious: Yes (Hospitalization)
  Sender: FDA-Public Use
  Company Number: GB-MPIJNJ-2011-02613

PATIENT

DRUGS (1)
  1. VELCADE [Suspect]
     Indication: PRIMARY AMYLOIDOSIS
     Route: 065

REACTIONS (3)
  - ORTHOSTATIC HYPOTENSION [None]
  - NAUSEA [None]
  - TOXICITY TO VARIOUS AGENTS [None]
